FAERS Safety Report 24127345 (Version 3)
Quarter: 2025Q2

REPORT INFORMATION
  Report Type: Spontaneous
  Country: GB (occurrence: GB)
  Receive Date: 20240723
  Receipt Date: 20250408
  Transmission Date: 20250717
  Serious: Yes (Hospitalization, Other)
  Sender: MYLAN
  Company Number: GB-MYLANLABS-2024M1063531

PATIENT
  Sex: Male

DRUGS (4)
  1. CLOZARIL [Suspect]
     Active Substance: CLOZAPINE
     Indication: Product used for unknown indication
     Dosage: 300 MILLIGRAM, QD (100 MG IN MORNING AND 200 MG AT NIGHT)
     Dates: start: 20221121
  2. CLOZARIL [Suspect]
     Active Substance: CLOZAPINE
     Dosage: 150 MILLIGRAM, QD (50 MG IN MORNING AND 100 MG AT NIGHT)
  3. CLOZARIL [Suspect]
     Active Substance: CLOZAPINE
     Dosage: 300 MILLIGRAM, QD (100 MG IN MORNING AND 200 MG AT NIGHT)
  4. VALPROATE SODIUM [Concomitant]
     Active Substance: VALPROATE SODIUM
     Indication: Mood swings
     Dosage: 2500 MILLIGRAM, QD (1000 MG IN MORNING AND 1500 MG AT NIGHT)

REACTIONS (5)
  - Urosepsis [Unknown]
  - Monocytosis [Not Recovered/Not Resolved]
  - Faecaloma [Unknown]
  - Constipation [Recovered/Resolved]
  - Leukocytosis [Recovered/Resolved]

NARRATIVE: CASE EVENT DATE: 20240703
